FAERS Safety Report 4865118-8 (Version None)
Quarter: 2005Q4

REPORT INFORMATION
  Report Type: 
  Country: None (occurrence: None)
  Receive Date: 20051219
  Receipt Date: 20051209
  Transmission Date: 20060501
  Serious: Yes (Life-Threatening, Hospitalization, Other)
  Sender: FDA-Public Use
  Company Number: 2005-11-0987

PATIENT
  Age: 49 Year
  Sex: Male
  Weight: 69 kg

DRUGS (4)
  1. PEG-INTRON [Suspect]
     Indication: HEPATITIS C
     Dosage: 100-50*MCG QW SUBCUTANEOUS
     Route: 058
     Dates: start: 20050315, end: 20050816
  2. REBETOL [Suspect]
     Indication: HEPATITIS C
     Dosage: 800-200* MG ORAL- SEE IMAGE
     Route: 048
     Dates: start: 20050315, end: 20050816
  3. FILGRASTIM                          INJECTABLE SOLUTION [Suspect]
     Indication: NEUTROPHIL COUNT DECREASED
     Dosage: 75 MCG SUBCUTANEOUS - SEE IMAGE
     Route: 058
     Dates: start: 20050809, end: 20051004
  4. KLARICID [Concomitant]

REACTIONS (5)
  - ACUTE MYELOID LEUKAEMIA [None]
  - BONE MARROW FAILURE [None]
  - HAEMOGLOBIN DECREASED [None]
  - MALIGNANT TRANSFORMATION [None]
  - MYELODYSPLASTIC SYNDROME [None]
